FAERS Safety Report 16009196 (Version 1)
Quarter: 2019Q1

REPORT INFORMATION
  Report Type: Spontaneous
  Country: US (occurrence: US)
  Receive Date: 20190225
  Receipt Date: 20190225
  Transmission Date: 20190418
  Serious: No
  Sender: FDA-Public Use
  Company Number: US-AMGEN-USASP2019026768

PATIENT
  Age: 68 Year
  Sex: Female
  Weight: 68.4 kg

DRUGS (5)
  1. XGEVA [Suspect]
     Active Substance: DENOSUMAB
     Dosage: UNK, Q3MO
     Route: 065
  2. IBRANCE [Suspect]
     Active Substance: PALBOCICLIB
     Indication: BREAST CANCER METASTATIC
     Dosage: 125 MG, 21 DAYS OUT OF 28 DAY CYCLE, UNK
     Route: 048
     Dates: start: 2017
  3. FASLODEX [Concomitant]
     Active Substance: FULVESTRANT
     Indication: BONE CANCER METASTATIC
     Dosage: 1 DF (ONE INJECTION IN EACH HIP AT ONCOLOGIST^S OFFICE MONTHLY), QMO, STARTED IT FEB/2016 OR FEB/201
     Route: 065
  4. XGEVA [Suspect]
     Active Substance: DENOSUMAB
     Indication: SUPPORTIVE CARE
     Dosage: UNK UNK, QMO
     Route: 065
     Dates: start: 2014
  5. FEMARA [Suspect]
     Active Substance: LETROZOLE
     Indication: BREAST CANCER METASTATIC
     Dosage: UNK
     Route: 065
     Dates: start: 2014

REACTIONS (2)
  - Off label use [Unknown]
  - Tremor [Not Recovered/Not Resolved]

NARRATIVE: CASE EVENT DATE: 2014
